FAERS Safety Report 4507815-X (Version None)
Quarter: 2005Q1

REPORT INFORMATION
  Report Type: 
  Country: None (occurrence: None)
  Receive Date: 20041018
  Receipt Date: 20040723
  Transmission Date: 20050727
  Serious: No
  Sender: FDA-Public Use
  Company Number: 205281

PATIENT
  Age: 54 Year
  Sex: Female
  Weight: 100.7 kg

DRUGS (12)
  1. XOLAIR [Suspect]
     Indication: DRUG USE FOR UNKNOWN INDICATION
     Dosage: 300 MG, SUBCUTANEOUS
     Route: 058
  2. ALBUTEROL NEBULIZER (ALBUTEROL SULFATE, ALBUTEROL) [Concomitant]
  3. XANAX [Concomitant]
  4. PREVACID [Concomitant]
  5. NEURACTIV (OXIRACETAM) [Concomitant]
  6. CELEXA [Concomitant]
  7. WELLBUTRIN [Concomitant]
  8. ALBUTEROL (ALBUTEROL, ALBUTEROL SULFATE) [Concomitant]
  9. CLARITIN [Concomitant]
  10. COMBIVENT INHALER (IPRATROPIUM BROMIDE, ALBUTEROL, ALBUTEROL SULFATE) [Concomitant]
  11. PULMICORT INHALER (BUDESONDIE) [Concomitant]
  12. MEDROL [Concomitant]

REACTIONS (2)
  - ABDOMINAL PAIN LOWER [None]
  - CONTUSION [None]
